FAERS Safety Report 4828135-X (Version None)
Quarter: 2005Q4

REPORT INFORMATION
  Report Type: 
  Country: None (occurrence: None)
  Receive Date: 20051114
  Receipt Date: 20051114
  Transmission Date: 20060501
  Serious: Yes (Hospitalization)
  Sender: FDA-Public Use
  Company Number: None

PATIENT
  Age: 74 Year
  Sex: Female

DRUGS (22)
  1. MORPHINE [Suspect]
     Indication: PAIN
     Dosage: 5 MG PRN IN PACU + PAC 1 MG/ML
  2. PRILOSEC [Concomitant]
  3. ATENOLOL [Concomitant]
  4. MULTI-VITAMIN [Concomitant]
  5. SPINAL ANESTHESICS [Concomitant]
  6. . [Concomitant]
  7. . [Concomitant]
  8. . [Concomitant]
  9. . [Concomitant]
  10. . [Concomitant]
  11. . [Concomitant]
  12. . [Concomitant]
  13. . [Concomitant]
  14. . [Concomitant]
  15. . [Concomitant]
  16. . [Concomitant]
  17. . [Concomitant]
  18. PERCOCET [Concomitant]
  19. LAXATIVES [Concomitant]
  20. NASAL O2 [Concomitant]
  21. IV ZOSYN [Concomitant]
  22. LEVAQUIN [Concomitant]

REACTIONS (1)
  - SEDATION [None]
